FAERS Safety Report 13865715 (Version 2)
Quarter: 2017Q3

REPORT INFORMATION
  Report Type: Report from Study
  Country: US (occurrence: US)
  Receive Date: 20170814
  Receipt Date: 20170824
  Transmission Date: 20171127
  Serious: Yes (Other)
  Sender: FDA-Public Use
  Company Number: US-GILEAD-2017-0287674

PATIENT
  Age: 75 Year
  Sex: Female

DRUGS (1)
  1. RANOLAZINE. [Suspect]
     Active Substance: RANOLAZINE
     Indication: ANGINA PECTORIS
     Dosage: 500 MG, UNK
     Route: 048

REACTIONS (5)
  - Wrong technique in product usage process [Unknown]
  - Feeling abnormal [Unknown]
  - Pneumonia [Unknown]
  - Off label use [Unknown]
  - Product use issue [Unknown]
